FAERS Safety Report 11743833 (Version 3)
Quarter: 2016Q2

REPORT INFORMATION
  Report Type: Spontaneous
  Country: JP (occurrence: JP)
  Receive Date: 20151116
  Receipt Date: 20160419
  Transmission Date: 20160815
  Serious: Yes (Death, Other)
  Sender: FDA-Public Use
  Company Number: JP-MALLINCKRODT-T201505211

PATIENT
  Age: 56 Year
  Sex: Male
  Weight: 92 kg

DRUGS (20)
  1. OXYFAST [Concomitant]
     Active Substance: OXYCODONE
     Dosage: 10 ML
     Route: 051
     Dates: start: 20140121, end: 20140125
  2. METHADONE [Suspect]
     Active Substance: METHADONE HYDROCHLORIDE
     Indication: CANCER PAIN
     Dosage: 2.5 MG (5 MG DAILY DOSE)
     Route: 048
     Dates: start: 20140120, end: 20140123
  3. METHADONE [Suspect]
     Active Substance: METHADONE HYDROCHLORIDE
     Dosage: 5 MG (10 MG DAILY DOSE)
     Route: 048
     Dates: start: 20140125, end: 20140125
  4. ROPION [Concomitant]
     Active Substance: FLURBIPROFEN AXETIL
     Indication: ANALGESIC THERAPY
     Dosage: 10 ML
     Route: 051
     Dates: end: 20140128
  5. PURSENNID [Concomitant]
     Active Substance: SENNOSIDES A AND B
     Dosage: 24 MG
     Route: 048
     Dates: end: 20140125
  6. FENTANYL. [Concomitant]
     Active Substance: FENTANYL
     Indication: ANALGESIC THERAPY
     Dosage: 5.6 MG
     Route: 062
     Dates: end: 20140124
  7. TRAVELMIN [Concomitant]
     Active Substance: DIMENHYDRINATE
     Dosage: 1 ML
     Route: 051
  8. METHADONE [Suspect]
     Active Substance: METHADONE HYDROCHLORIDE
     Dosage: (20 MG DAILY DOSE)
     Route: 048
     Dates: start: 20140126, end: 20140129
  9. DROLEPTAN [Concomitant]
     Active Substance: DROPERIDOL
     Indication: ANALGESIC THERAPY
     Dosage: 0.5 ML
     Route: 051
     Dates: start: 20140128
  10. OXYFAST [Concomitant]
     Active Substance: OXYCODONE
     Indication: ANALGESIC THERAPY
     Dosage: 10 MG PRN
     Route: 051
     Dates: start: 20140119
  11. SERENACE [Concomitant]
     Active Substance: HALOPERIDOL
     Dosage: 0.5 ML
     Route: 051
     Dates: start: 20140121, end: 20140128
  12. LECICARBON [Concomitant]
     Active Substance: SODIUM BICARBONATE\SODIUM PHOSPHATE, MONOBASIC
     Dosage: 1 DF
     Route: 054
     Dates: start: 20140125
  13. AMINOLEBAN [Concomitant]
     Active Substance: AMINO ACIDS
     Dosage: 200 ML
     Route: 042
     Dates: start: 20140120
  14. CONBELBE [Concomitant]
     Dosage: 10 ML
     Route: 051
     Dates: start: 20140120
  15. MINOFIT [Concomitant]
     Active Substance: CYSTEINE\GLYCINE\GLYCYRRHIZIN
     Dosage: 40 ML
     Route: 051
     Dates: start: 20140120
  16. MORPHINE HYDROCHLORIDE [Concomitant]
     Active Substance: MORPHINE HYDROCHLORIDE
     Indication: ANALGESIC THERAPY
     Dosage: 10 ML
     Route: 051
     Dates: start: 20140126, end: 20140129
  17. METHADONE [Suspect]
     Active Substance: METHADONE HYDROCHLORIDE
     Dosage: (7.5 MG DAILY DOSE)
     Route: 048
     Dates: start: 20140124, end: 20140124
  18. FENTANYL. [Concomitant]
     Active Substance: FENTANYL
     Dosage: 2.8 MG
     Route: 062
     Dates: start: 20140125, end: 20140126
  19. DORMICUM [Concomitant]
     Active Substance: MIDAZOLAM\MIDAZOLAM HYDROCHLORIDE
     Dosage: 1 ML
     Route: 051
     Dates: start: 20140121, end: 20140125
  20. KETALAR [Concomitant]
     Active Substance: KETAMINE HYDROCHLORIDE
     Indication: ANALGESIC THERAPY
     Dosage: 5 ML
     Route: 042
     Dates: start: 20140126

REACTIONS (3)
  - Colon cancer [Fatal]
  - Gastrointestinal haemorrhage [Recovering/Resolving]
  - Pyrexia [Not Recovered/Not Resolved]

NARRATIVE: CASE EVENT DATE: 20140126
